FAERS Safety Report 8115914-9 (Version None)
Quarter: 2012Q1

REPORT INFORMATION
  Report Type: 
  Country: None (occurrence: None)
  Receive Date: 20120206
  Receipt Date: 20120203
  Transmission Date: 20120608
  Serious: Yes (Other)
  Sender: FDA-Public Use
  Company Number: BE-ROCHE-1036526

PATIENT
  Sex: Female

DRUGS (2)
  1. BETABLOCKERS [Concomitant]
  2. AVASTIN [Suspect]
     Indication: BREAST CANCER

REACTIONS (1)
  - CARDIOVASCULAR DISORDER [None]
